FAERS Safety Report 5280860-5 (Version None)
Quarter: 2007Q1

REPORT INFORMATION
  Report Type: 
  Country: None (occurrence: None)
  Receive Date: 20070329
  Receipt Date: 20070317
  Transmission Date: 20070707
  Serious: Yes (Hospitalization, Other)
  Sender: FDA-Public Use
  Company Number: BR-ELI_LILLY_AND_COMPANY-BR200703003370

PATIENT
  Sex: Female

DRUGS (1)
  1. CYMBALTA [Suspect]
     Indication: MAJOR DEPRESSION
     Dosage: UNK, UNKNOWN
     Route: 048
     Dates: start: 20060901

REACTIONS (7)
  - ABDOMINAL INFECTION [None]
  - ANXIETY [None]
  - DEPRESSIVE SYMPTOM [None]
  - GASTROINTESTINAL FISTULA [None]
  - NAUSEA [None]
  - SUTURE RUPTURE [None]
  - VOMITING [None]
